FAERS Safety Report 5223960-8 (Version None)
Quarter: 2007Q1

REPORT INFORMATION
  Report Type: 
  Country: None (occurrence: None)
  Receive Date: 20070130
  Receipt Date: 20070126
  Transmission Date: 20070707
  Serious: Yes (Other)
  Sender: FDA-Public Use
  Company Number: US-GLAXOSMITHKLINE-A0637212A

PATIENT
  Sex: Male

DRUGS (5)
  1. COREG [Suspect]
     Dosage: 3MG TWICE PER DAY
     Route: 048
  2. PROPECIA [Concomitant]
  3. COUMADIN [Concomitant]
  4. ALLEGRA [Concomitant]
  5. ENALAPRIL MALEATE [Concomitant]

REACTIONS (3)
  - ALOPECIA [None]
  - COAGULOPATHY [None]
  - THERAPEUTIC RESPONSE UNEXPECTED [None]
